FAERS Safety Report 18021650 (Version 1)
Quarter: 2020Q3

REPORT INFORMATION
  Report Type: Spontaneous
  Country: US (occurrence: US)
  Receive Date: 20200714
  Receipt Date: 20200714
  Transmission Date: 20201103
  Serious: Yes (Death, Life-Threatening, Other)
  Sender: FDA-Public Use
  Company Number: US-PFIZER INC-2020264723

PATIENT
  Age: 30 Year
  Sex: Male

DRUGS (3)
  1. FIBRINOGEN [Concomitant]
     Active Substance: FIBRINOGEN HUMAN
     Indication: DISSEMINATED INTRAVASCULAR COAGULATION
     Dosage: 8 G
  2. HEPARIN SODIUM. [Suspect]
     Active Substance: HEPARIN SODIUM
     Indication: DISSEMINATED INTRAVASCULAR COAGULATION
     Dosage: 15000 IU
  3. HEPARIN SODIUM. [Suspect]
     Active Substance: HEPARIN SODIUM
     Dosage: UNK (SECOND DOSE)

REACTIONS (4)
  - Coma [Fatal]
  - Hypotension [Fatal]
  - Retroperitoneal haematoma [Fatal]
  - Cerebral haemorrhage [Fatal]
